FAERS Safety Report 5074249-1 (Version None)
Quarter: 2006Q3

REPORT INFORMATION
  Report Type: 
  Country: None (occurrence: None)
  Receive Date: 20060803
  Receipt Date: 20060719
  Transmission Date: 20061208
  Serious: Yes (Hospitalization)
  Sender: FDA-Public Use
  Company Number: 227494

PATIENT
  Age: 70 Year
  Sex: Female

DRUGS (12)
  1. AVASTIN [Suspect]
     Indication: NON-SMALL CELL LUNG CANCER
     Dosage: 750 MG, Q3W, INTRAVENOUS
     Route: 042
     Dates: start: 20060119, end: 20060323
  2. ERLOTINIB (ERLOTINIB) TABLET, 150MG [Suspect]
     Indication: NON-SMALL CELL LUNG CANCER
     Dosage: 150 MG, QD, ORAL
     Route: 048
     Dates: start: 20060119, end: 20060413
  3. CISPLATIN [Suspect]
     Indication: NON-SMALL CELL LUNG CANCER
     Dosage: 80 MG/M2, Q3W, INTRAVENOUS
     Route: 042
     Dates: start: 20060420, end: 20060622
  4. GEMCITABINE [Suspect]
     Indication: NON-SMALL CELL LUNG CANCER
     Dosage: 1250 MG/M2, 2 PER Q3W, INTRAVENOUS
     Route: 042
     Dates: start: 20060420, end: 20060629
  5. IRFEN (IBUPROFEN) [Concomitant]
  6. ZOLPIDEM TARTRATE [Concomitant]
  7. NITRODERM (NITROGLYCERIN) [Concomitant]
  8. PASPERTIN (METOCLOPRAMIDE HYDROCHLORIDE) [Concomitant]
  9. CONCOMITANT DRUG (GENERIC COMPONENT (S)) [Concomitant]
  10. PERINDOPRIL ERBUMINE [Concomitant]
  11. DURAGESIC-100 [Interacting]
  12. NEXIUM [Concomitant]

REACTIONS (4)
  - BLOOD MAGNESIUM DECREASED [None]
  - BLOOD PRESSURE INCREASED [None]
  - GRAND MAL CONVULSION [None]
  - REVERSIBLE POSTERIOR LEUKOENCEPHALOPATHY SYNDROME [None]
